FAERS Safety Report 13119318 (Version 1)
Quarter: 2017Q1

REPORT INFORMATION
  Report Type: Report from Study
  Country: DE (occurrence: DE)
  Receive Date: 20170116
  Receipt Date: 20170116
  Transmission Date: 20170428
  Serious: Yes (Hospitalization)
  Sender: FDA-Public Use
  Company Number: DE-AMGEN-DEUNI2017007053

PATIENT
  Age: 86 Year
  Sex: Male

DRUGS (12)
  1. ALLOPURINOL. [Concomitant]
     Active Substance: ALLOPURINOL
  2. TAMSULOSIN [Concomitant]
     Active Substance: TAMSULOSIN
  3. ETANERCEPT [Suspect]
     Active Substance: ETANERCEPT
     Indication: RHEUMATOID ARTHRITIS
     Dosage: 50 MG, QWK (ALL 8 DAYS)
     Route: 065
     Dates: end: 201601
  4. PREDNISOLON [Concomitant]
     Active Substance: PREDNISOLONE
  5. PANTOZOL [Concomitant]
     Active Substance: PANTOPRAZOLE SODIUM
  6. CYCLOCAPS [Concomitant]
  7. VIGANTOLETTEN [Concomitant]
     Active Substance: CHOLECALCIFEROL
  8. SALBUTAMOL [Concomitant]
     Active Substance: ALBUTEROL
  9. TORASEMID [Concomitant]
     Active Substance: TORSEMIDE
  10. CANDESARTAN [Concomitant]
     Active Substance: CANDESARTAN
  11. ASPIRIN. [Concomitant]
     Active Substance: ASPIRIN
  12. ULTIBRO BREEZHALER [Concomitant]
     Active Substance: GLYCOPYRRONIUM\INDACATEROL

REACTIONS (2)
  - Splenomegaly [Not Recovered/Not Resolved]
  - Mantle cell lymphoma stage IV [Not Recovered/Not Resolved]

NARRATIVE: CASE EVENT DATE: 201602
